FAERS Safety Report 5679544-0 (Version None)
Quarter: 2008Q1

REPORT INFORMATION
  Report Type: 
  Country: None (occurrence: None)
  Receive Date: 20080325
  Receipt Date: 20080313
  Transmission Date: 20080703
  Serious: Yes (Other)
  Sender: FDA-Public Use
  Company Number: US-PFIZER INC-2008024194

PATIENT
  Sex: Female
  Weight: 104.54 kg

DRUGS (6)
  1. NEURONTIN [Suspect]
     Indication: FIBROMYALGIA
     Dates: start: 20020101, end: 20071101
  2. LYRICA [Suspect]
     Indication: FIBROMYALGIA
  3. LORTAB [Concomitant]
  4. XANAX [Concomitant]
  5. VITAMIN CAP [Concomitant]
  6. ZYRTEC [Concomitant]

REACTIONS (8)
  - ACTIVITIES OF DAILY LIVING IMPAIRED [None]
  - DIZZINESS [None]
  - DRUG INEFFECTIVE [None]
  - INCREASED APPETITE [None]
  - INSOMNIA [None]
  - PARAESTHESIA [None]
  - TREMOR [None]
  - WEIGHT INCREASED [None]
